FAERS Safety Report 4312124-8 (Version None)
Quarter: 2004Q1

REPORT INFORMATION
  Report Type: 
  Country: None (occurrence: None)
  Receive Date: 20040304
  Receipt Date: 20040304
  Transmission Date: 20041129
  Serious: Yes (Hospitalization)
  Sender: FDA-Public Use
  Company Number: None

PATIENT
  Age: 60 Year
  Sex: Male
  Weight: 72 kg

DRUGS (4)
  1. TAXOL [Suspect]
     Indication: PROSTATE CANCER METASTATIC
     Dosage: 180MG/M2 = 149 MG DLIV
     Route: 042
     Dates: start: 20041126
  2. CARBOPLATIN [Suspect]
     Dosage: AUC=6 250 MG IV D
     Route: 042
     Dates: start: 20040126, end: 20040131
  3. COLCHICINE [Suspect]
     Dosage: COLCHICINE 0.6 MG PO QD
  4. OXYCONTIN [Concomitant]

REACTIONS (5)
  - ABDOMINAL PAIN [None]
  - APPENDICECTOMY [None]
  - DECREASED APPETITE [None]
  - LARGE INTESTINE PERFORATION [None]
  - NAUSEA [None]
